FAERS Safety Report 23183821 (Version 1)
Quarter: 2023Q4

REPORT INFORMATION
  Report Type: Spontaneous
  Country: SI (occurrence: SI)
  Receive Date: 20231114
  Receipt Date: 20231114
  Transmission Date: 20240110
  Serious: Yes (Hospitalization)
  Sender: FDA-Public Use
  Company Number: SI-BIOGEN-2023BI01235321

PATIENT
  Age: 3 Month
  Sex: Male

DRUGS (2)
  1. SPINRAZA [Suspect]
     Active Substance: NUSINERSEN
     Indication: Spinal muscular atrophy
     Route: 050
     Dates: start: 20180410
  2. ZOLGENSMA [Concomitant]
     Active Substance: ONASEMNOGENE ABEPARVOVEC-XIOI
     Indication: Spinal muscular atrophy
     Route: 050
     Dates: start: 201911

REACTIONS (15)
  - Respiratory failure [Unknown]
  - Pneumothorax [Unknown]
  - Atelectasis [Unknown]
  - Rhinovirus infection [Unknown]
  - Pneumonia aspiration [Unknown]
  - Osteopenia [Unknown]
  - Hypotonia [Unknown]
  - Muscle contractions involuntary [Unknown]
  - Motor dysfunction [Unknown]
  - Kyphosis [Unknown]
  - Muscular weakness [Unknown]
  - Weight bearing difficulty [Unknown]
  - Scoliosis [Unknown]
  - Mobility decreased [Unknown]
  - Dysphonia [Unknown]

NARRATIVE: CASE EVENT DATE: 20180401
